FAERS Safety Report 23660623 (Version 1)
Quarter: 2024Q1

REPORT INFORMATION
  Report Type: Spontaneous
  Country: US (occurrence: US)
  Receive Date: 20240322
  Receipt Date: 20240322
  Transmission Date: 20240409
  Serious: No
  Sender: FDA-Public Use
  Company Number: US-GSKCCFUS-Case-01962005_AE-109068

PATIENT
  Sex: Female

DRUGS (2)
  1. BENLYSTA [Suspect]
     Active Substance: BELIMUMAB
     Indication: Systemic lupus erythematosus
     Dosage: UNK
     Dates: start: 2022
  2. LEFLUNOMIDE [Suspect]
     Active Substance: LEFLUNOMIDE
     Indication: Product used for unknown indication
     Dosage: UNK

REACTIONS (6)
  - Fatigue [Unknown]
  - Mood altered [Unknown]
  - Emotional disorder [Unknown]
  - Platelet count decreased [Recovered/Resolved]
  - Serum ferritin increased [Recovered/Resolved]
  - White blood cell count decreased [Recovered/Resolved]
